FAERS Safety Report 20812384 (Version 2)
Quarter: 2023Q4

REPORT INFORMATION
  Report Type: Spontaneous
  Country: GB (occurrence: GB)
  Receive Date: 20220511
  Receipt Date: 20231117
  Transmission Date: 20240110
  Serious: Yes (Other)
  Sender: FDA-Public Use
  Company Number: GB-TEVA-2022-GB-2035644

PATIENT
  Age: 58 Year
  Sex: Female

DRUGS (11)
  1. CISPLATIN [Suspect]
     Active Substance: CISPLATIN
     Indication: Gallbladder cancer stage IV
     Dosage: FIRST-LINE THERAPY
     Route: 065
     Dates: start: 201905
  2. LEUCOVORIN [Suspect]
     Active Substance: LEUCOVORIN\LEUCOVORIN CALCIUM
     Indication: Gallbladder cancer stage IV
     Dosage: THIRD-LINE FOLFOX CHEMOTHERAPY
     Route: 065
     Dates: start: 201909, end: 202003
  3. LEUCOVORIN [Suspect]
     Active Substance: LEUCOVORIN\LEUCOVORIN CALCIUM
     Indication: Gallbladder cancer stage IV
     Route: 065
     Dates: start: 202008
  4. GEMCITABINE [Suspect]
     Active Substance: GEMCITABINE
     Indication: Gallbladder cancer stage IV
     Dosage: FIRST-LINE THERAPY
     Route: 065
     Dates: start: 201905
  5. FLUOROURACIL [Suspect]
     Active Substance: FLUOROURACIL
     Indication: Gallbladder cancer stage IV
     Dosage: THIRD-LINE FOLFOX CHEMOTHERAPY
     Route: 065
     Dates: start: 201909, end: 202003
  6. FLUOROURACIL [Suspect]
     Active Substance: FLUOROURACIL
     Indication: Gallbladder cancer stage IV
     Route: 065
     Dates: start: 202008
  7. OXALIPLATIN [Suspect]
     Active Substance: OXALIPLATIN
     Indication: Gallbladder cancer stage IV
     Dosage: THIRD-LINE FOLFOX CHEMOTHERAPY
     Route: 065
     Dates: start: 201909, end: 202003
  8. OXALIPLATIN [Suspect]
     Active Substance: OXALIPLATIN
     Indication: Gallbladder cancer stage IV
     Route: 065
     Dates: start: 202008
  9. TRASTUZUMAB [Suspect]
     Active Substance: TRASTUZUMAB
     Indication: Gallbladder cancer stage IV
     Dosage: LOADING DOSE
     Route: 065
     Dates: start: 202011
  10. TRASTUZUMAB [Suspect]
     Active Substance: TRASTUZUMAB
     Indication: Gallbladder cancer stage IV
     Route: 065
     Dates: start: 202011, end: 202103
  11. LAPATINIB [Suspect]
     Active Substance: LAPATINIB
     Indication: Gallbladder cancer stage IV
     Route: 065
     Dates: start: 202011, end: 2021

REACTIONS (3)
  - Diarrhoea [Unknown]
  - Drug ineffective [Unknown]
  - Drug resistance [Unknown]

NARRATIVE: CASE EVENT DATE: 20190101
